FAERS Safety Report 6838137-X (Version None)
Quarter: 2010Q3

REPORT INFORMATION
  Report Type: 
  Country: None (occurrence: None)
  Receive Date: 20100713
  Receipt Date: 20070531
  Transmission Date: 20110219
  Serious: No
  Sender: FDA-Public Use
  Company Number: US-PFIZER INC-2007045369

PATIENT
  Sex: Female

DRUGS (1)
  1. CHANTIX [Suspect]
     Dates: start: 20070501

REACTIONS (5)
  - ABNORMAL DREAMS [None]
  - DIARRHOEA [None]
  - DISTURBANCE IN ATTENTION [None]
  - FLATULENCE [None]
  - NAUSEA [None]
